FAERS Safety Report 7619684-X (Version None)
Quarter: 2011Q3

REPORT INFORMATION
  Report Type: 
  Country: None (occurrence: None)
  Receive Date: 20110719
  Receipt Date: 20110712
  Transmission Date: 20111222
  Serious: Yes (Hospitalization)
  Sender: FDA-Public Use
  Company Number: US-BAYER-2011-017190

PATIENT
  Age: 24 Year
  Sex: Female
  Weight: 83 kg

DRUGS (4)
  1. LORTAB [Concomitant]
  2. AUGMENTIN '125' [Concomitant]
     Dosage: 875 MG, BID
     Route: 048
  3. COLACE [Concomitant]
  4. DROSPIRENONE AND ETHINYL ESTRADIOL [Suspect]
     Indication: ORAL CONTRACEPTION
     Dosage: UNK
     Dates: start: 20070101, end: 20090701

REACTIONS (16)
  - JAUNDICE [None]
  - INJURY [None]
  - EMOTIONAL DISTRESS [None]
  - PAIN [None]
  - FEAR OF DEATH [None]
  - NERVOUSNESS [None]
  - NAUSEA [None]
  - CHOLELITHIASIS [None]
  - ABDOMINAL PAIN UPPER [None]
  - ABDOMINAL PAIN [None]
  - CHROMATURIA [None]
  - CHOLECYSTITIS ACUTE [None]
  - BILE DUCT STONE [None]
  - DEPRESSION [None]
  - VOMITING [None]
  - OCULAR ICTERUS [None]
